FAERS Safety Report 24163273 (Version 1)
Quarter: 2024Q3

REPORT INFORMATION
  Report Type: Spontaneous
  Country: US (occurrence: None)
  Receive Date: 20240801
  Receipt Date: 20240801
  Transmission Date: 20241017
  Serious: Yes (Hospitalization)
  Sender: Public
  Company Number: None

PATIENT
  Age: 73 Year
  Sex: Female

DRUGS (1)
  1. DEFERASIROX [Suspect]
     Active Substance: DEFERASIROX
     Dosage: FREQUENCY : AS DIRECTED;?
     Route: 048
     Dates: start: 20231129

REACTIONS (3)
  - Nausea [None]
  - Vomiting [None]
  - Unevaluable event [None]

NARRATIVE: CASE EVENT DATE: 20240723
